FAERS Safety Report 17662868 (Version 1)
Quarter: 2020Q2

REPORT INFORMATION
  Report Type: Spontaneous
  Country: NO (occurrence: NO)
  Receive Date: 20200413
  Receipt Date: 20200413
  Transmission Date: 20200713
  Serious: Yes (Disabling, Other)
  Sender: FDA-Public Use
  Company Number: NO-BAYER-2020-054348

PATIENT
  Age: 18 Year
  Sex: Female
  Weight: 80 kg

DRUGS (1)
  1. YASMINELLE [Suspect]
     Active Substance: DROSPIRENONE
     Indication: CONTRACEPTION
     Dosage: 1 TOTAL, QD
     Dates: start: 20110601, end: 20141208

REACTIONS (1)
  - Urinary tract infection [Recovered/Resolved with Sequelae]

NARRATIVE: CASE EVENT DATE: 20110601
